FAERS Safety Report 26155554 (Version 1)
Quarter: 2025Q4

REPORT INFORMATION
  Report Type: Report from Study
  Country: US (occurrence: US)
  Receive Date: 20251215
  Receipt Date: 20251215
  Transmission Date: 20260118
  Serious: Yes (Other)
  Sender: GILEAD
  Company Number: US-GILEAD-2025-0740483

PATIENT
  Sex: Female

DRUGS (1)
  1. AZTREONAM LYSINE [Suspect]
     Active Substance: AZTREONAM LYSINE
     Indication: Illness
     Dosage: 75 MG INHALATION THREE TIMES DAILY ALTERNATING 14 DAYS ON AND 14 DAYS OFF
     Route: 055

REACTIONS (2)
  - Pseudomonas infection [Not Recovered/Not Resolved]
  - Product use issue [Unknown]
